FAERS Safety Report 6409553-5 (Version None)
Quarter: 2009Q4

REPORT INFORMATION
  Report Type: 
  Country: None (occurrence: None)
  Receive Date: 20091022
  Receipt Date: 20090921
  Transmission Date: 20100525
  Serious: No
  Sender: FDA-Public Use
  Company Number: US-BAYER-200933576NA

PATIENT
  Age: 63 Year
  Sex: Male

DRUGS (5)
  1. LEVITRA [Suspect]
     Indication: ERECTILE DYSFUNCTION
     Dosage: UNIT DOSE: 10 MG
     Route: 048
     Dates: start: 20090301
  2. VITAMINS [Concomitant]
  3. ANTACID TAB [Concomitant]
  4. FLONASE [Concomitant]
  5. SALINE SOLUTIONS [Concomitant]

REACTIONS (2)
  - HICCUPS [None]
  - NASAL CONGESTION [None]
